FAERS Safety Report 16399733 (Version 1)
Quarter: 2019Q2

REPORT INFORMATION
  Report Type: Spontaneous
  Country: AU (occurrence: AU)
  Receive Date: 20190606
  Receipt Date: 20190606
  Transmission Date: 20190711
  Serious: Yes (Other)
  Sender: FDA-Public Use
  Company Number: AU-PFIZER INC-2019235687

PATIENT
  Age: 55 Year
  Sex: Female

DRUGS (1)
  1. CHAMPIX [Suspect]
     Active Substance: VARENICLINE TARTRATE
     Dosage: UNK

REACTIONS (6)
  - Dehydration [Unknown]
  - Vomiting [Unknown]
  - Throat tightness [Unknown]
  - Dyspepsia [Unknown]
  - Dysgeusia [Unknown]
  - Feeding disorder [Unknown]
